FAERS Safety Report 12498883 (Version 1)
Quarter: 2016Q2

REPORT INFORMATION
  Report Type: Spontaneous
  Country: JP (occurrence: JP)
  Receive Date: 20160627
  Receipt Date: 20160627
  Transmission Date: 20160815
  Serious: Yes (Other)
  Sender: FDA-Public Use
  Company Number: JP-PFIZER INC-2016307784

PATIENT
  Age: 79 Year
  Sex: Female

DRUGS (2)
  1. SUTENT [Suspect]
     Active Substance: SUNITINIB MALATE
     Indication: RENAL CANCER
     Dosage: 37.5 MG, DAILY
     Route: 048
     Dates: start: 201209, end: 201307
  2. SUTENT [Suspect]
     Active Substance: SUNITINIB MALATE
     Dosage: 25 MG, DAILY
     Route: 048
     Dates: start: 201307, end: 201505

REACTIONS (6)
  - Disease progression [Unknown]
  - Bone marrow failure [Unknown]
  - Malaise [Unknown]
  - Oedema [Unknown]
  - Diarrhoea [Unknown]
  - Renal cancer [Unknown]

NARRATIVE: CASE EVENT DATE: 201212
